FAERS Safety Report 5885668-5 (Version None)
Quarter: 2008Q3

REPORT INFORMATION
  Report Type: 
  Country: None (occurrence: None)
  Receive Date: 20080912
  Receipt Date: 20080904
  Transmission Date: 20090109
  Serious: Yes (Other)
  Sender: FDA-Public Use
  Company Number: 2006JP005034

PATIENT
  Age: 2 Year
  Sex: Male
  Weight: 10.5 kg

DRUGS (11)
  1. PROTOPIC [Suspect]
     Indication: DERMATITIS ATOPIC
     Dosage: 0.03%,TOPICAL
     Route: 061
     Dates: start: 20051224, end: 20060327
  2. LOCOID OINTEMNT [Concomitant]
  3. WHITE PETROLEUM (PETROLATUM) OINTMENT [Concomitant]
  4. RINDERON-VG (GENTAMICIN SULFATE) LOTION [Concomitant]
  5. UREPEARL (UREA) LOTION [Concomitant]
  6. ZINC OXIDE (ZINC OXIDE) OINTMENT [Concomitant]
  7. SPIRAZON (PREDNISOLONE VALEROACETATE) OINTMENT [Concomitant]
  8. HIRUDOID (HEPARINOID) OINTMENT [Concomitant]
  9. PALDES (CLOBETASONE BUTYRATE) OINTMENT [Concomitant]
  10. PERIACTIN (CYPROHEPTADINE HYDROCHLORIDE) SYRUP [Concomitant]
  11. O-GI-KEN-CHU-TO PER ORAL NOS [Concomitant]

REACTIONS (3)
  - BACTERIAL INFECTION [None]
  - EYELID PTOSIS [None]
  - KAPOSI'S VARICELLIFORM ERUPTION [None]
